FAERS Safety Report 4972692-X (Version None)
Quarter: 2006Q1

REPORT INFORMATION
  Report Type: 
  Country: None (occurrence: None)
  Receive Date: 20060215
  Receipt Date: 20051025
  Transmission Date: 20060701
  Serious: No
  Sender: FDA-Public Use
  Company Number: USA0510111842

PATIENT
  Age: 56 Year
  Sex: Male

DRUGS (1)
  1. CIALIS [Suspect]
     Indication: ANXIETY DISORDER
     Dosage: 10 MG, ORAL
     Route: 048

REACTIONS (1)
  - DRUG INEFFECTIVE [None]
